FAERS Safety Report 14339959 (Version 2)
Quarter: 2018Q4

REPORT INFORMATION
  Report Type: Spontaneous
  Country: US (occurrence: US)
  Receive Date: 20171231
  Receipt Date: 20181128
  Transmission Date: 20190204
  Serious: No
  Sender: FDA-Public Use
  Company Number: US-TEVA-2017-US-839244

PATIENT
  Sex: Male

DRUGS (1)
  1. CLONAZEPAM. [Suspect]
     Active Substance: CLONAZEPAM
     Indication: GENERALISED ANXIETY DISORDER
     Dosage: 2 MILLIGRAM DAILY;
     Route: 065

REACTIONS (11)
  - Abdominal discomfort [Unknown]
  - Fear [Unknown]
  - Wrong technique in product usage process [Unknown]
  - Chest pain [Unknown]
  - Chest discomfort [Unknown]
  - Anxiety [Unknown]
  - Heart rate irregular [Unknown]
  - Insomnia [Unknown]
  - Drug intolerance [Unknown]
  - Withdrawal syndrome [Unknown]
  - Product substitution issue [Unknown]

NARRATIVE: CASE EVENT DATE: 20180104
